FAERS Safety Report 16382590 (Version 1)
Quarter: 2019Q2

REPORT INFORMATION
  Report Type: Spontaneous
  Country: JP (occurrence: JP)
  Receive Date: 20190603
  Receipt Date: 20190603
  Transmission Date: 20190711
  Serious: Yes (Hospitalization, Other)
  Sender: FDA-Public Use
  Company Number: JP-MACLEODS PHARMACEUTICALS US LTD-MAC2019021500

PATIENT

DRUGS (3)
  1. RINDERON (BETAMETHASONE) [Suspect]
     Active Substance: BETAMETHASONE
     Indication: TENOSYNOVITIS STENOSANS
     Dosage: 5 DOSAGE FORM OF 2 GM
     Route: 065
  2. TRIAMCINOLONE ACETONIDE. [Suspect]
     Active Substance: TRIAMCINOLONE ACETONIDE
     Indication: TENOSYNOVITIS STENOSANS
     Dosage: 4 DOSAGE FORM OF 10 MG INJECTION
     Route: 065
  3. LIDOCAINE. [Concomitant]
     Active Substance: LIDOCAINE
     Indication: TENOSYNOVITIS STENOSANS
     Dosage: 1% OF 0.5 MILLILITER
     Route: 065

REACTIONS (1)
  - Osteonecrosis [Recovered/Resolved]
